FAERS Safety Report 14264702 (Version 5)
Quarter: 2019Q2

REPORT INFORMATION
  Report Type: Spontaneous
  Country: US (occurrence: US)
  Receive Date: 20171208
  Receipt Date: 20190426
  Transmission Date: 20190711
  Serious: No
  Sender: FDA-Public Use
  Company Number: US-VIFOR (INTERNATIONAL) INC.-VIT-2017-09153

PATIENT
  Sex: Female

DRUGS (30)
  1. CELEXA [Concomitant]
     Active Substance: CITALOPRAM HYDROBROMIDE
  2. XANAX [Concomitant]
     Active Substance: ALPRAZOLAM
  3. FIBER LAX [Concomitant]
     Active Substance: CALCIUM POLYCARBOPHIL
  4. VELTASSA [Suspect]
     Active Substance: PATIROMER
     Route: 048
  5. VELTASSA [Suspect]
     Active Substance: PATIROMER
     Indication: HYPERKALAEMIA
     Route: 048
     Dates: start: 20170224
  6. COLACE CLEAR [Concomitant]
     Active Substance: DOCUSATE SODIUM
  7. SIMVASTATIN. [Concomitant]
     Active Substance: SIMVASTATIN
  8. URSODIOL. [Concomitant]
     Active Substance: URSODIOL
  9. DOXYCYCLINE HYCLATE. [Concomitant]
     Active Substance: DOXYCYCLINE HYCLATE
  10. ALPRAZOLAM. [Concomitant]
     Active Substance: ALPRAZOLAM
  11. FOLIC ACID. [Concomitant]
     Active Substance: FOLIC ACID
  12. CARVEDILOL. [Concomitant]
     Active Substance: CARVEDILOL
  13. TRAZODONE HYDROCHLORIDE. [Concomitant]
     Active Substance: TRAZODONE HYDROCHLORIDE
  14. MELATONIN [Concomitant]
     Active Substance: MELATONIN
  15. TORSEMIDE. [Concomitant]
     Active Substance: TORSEMIDE
  16. PROBIOTIC [Concomitant]
     Active Substance: PROBIOTICS NOS
  17. PLAQUENIL [Concomitant]
     Active Substance: HYDROXYCHLOROQUINE SULFATE
  18. CALCITRIOL. [Concomitant]
     Active Substance: CALCITRIOL
  19. FIBERCON [Concomitant]
     Active Substance: CALCIUM POLYCARBOPHIL
  20. VITAMIN D3 [Concomitant]
     Active Substance: CHOLECALCIFEROL
  21. CITRACAL PETITES/ VITAMIN D [Concomitant]
  22. ARANESP [Concomitant]
     Active Substance: DARBEPOETIN ALFA
  23. DICYCLOMINE HYDROCHLORIDE. [Concomitant]
     Active Substance: DICYCLOMINE HYDROCHLORIDE
  24. PROLIA [Concomitant]
     Active Substance: DENOSUMAB
  25. OMEPRAZOLE. [Concomitant]
     Active Substance: OMEPRAZOLE
  26. ZYRTEC [Concomitant]
     Active Substance: CETIRIZINE HYDROCHLORIDE
  27. SENNA [Concomitant]
     Active Substance: SENNA LEAF\SENNOSIDES\SENNOSIDES A AND B
  28. ASPIRIN. [Concomitant]
     Active Substance: ASPIRIN
  29. SODIUM BICARBONATE. [Concomitant]
     Active Substance: SODIUM BICARBONATE
  30. TYLENOL [Concomitant]
     Active Substance: ACETAMINOPHEN

REACTIONS (7)
  - Gastrointestinal disorder [Unknown]
  - Renal disorder [Unknown]
  - Off label use [Unknown]
  - Urinary tract infection [Unknown]
  - Influenza [Recovered/Resolved]
  - Nasopharyngitis [Unknown]
  - Fracture [Unknown]
